FAERS Safety Report 10797587 (Version 3)
Quarter: 2015Q2

REPORT INFORMATION
  Report Type: Spontaneous
  Country: US (occurrence: US)
  Receive Date: 20150216
  Receipt Date: 20150609
  Transmission Date: 20150821
  Serious: Yes (Hospitalization, Other)
  Sender: FDA-Public Use
  Company Number: US-BAYER-2015-023051

PATIENT
  Age: 31 Year
  Sex: Female
  Weight: 54 kg

DRUGS (4)
  1. MIRENA [Suspect]
     Active Substance: LEVONORGESTREL
     Indication: CONTRACEPTION
     Dosage: 20 MCG/24HR, CONT
     Route: 015
     Dates: start: 20110516, end: 20130313
  2. ADVIL [Concomitant]
     Active Substance: IBUPROFEN
  3. MOTRIN [Concomitant]
     Active Substance: IBUPROFEN
  4. FLEXERIL [Concomitant]
     Active Substance: CYCLOBENZAPRINE HYDROCHLORIDE
     Indication: BACK PAIN
     Dosage: 10 MG, HS PRN
     Route: 048
     Dates: start: 20130201

REACTIONS (8)
  - Uterine perforation [None]
  - Genital haemorrhage [None]
  - Procedural pain [None]
  - Emotional distress [None]
  - Injury [None]
  - Device issue [None]
  - Anxiety [None]
  - Depression [None]

NARRATIVE: CASE EVENT DATE: 201206
